FAERS Safety Report 20105454 (Version 1)
Quarter: 2021Q4

REPORT INFORMATION
  Report Type: Spontaneous
  Country: US (occurrence: US)
  Receive Date: 20211124
  Receipt Date: 20211124
  Transmission Date: 20220303
  Serious: No
  Sender: FDA-Public Use
  Company Number: US-AUROBINDO-AUR-APL-2020-062171

PATIENT
  Age: 54 Year
  Sex: Male

DRUGS (2)
  1. HYDROCHLOROTHIAZIDE\LOSARTAN POTASSIUM [Suspect]
     Active Substance: HYDROCHLOROTHIAZIDE\LOSARTAN POTASSIUM
     Indication: Blood pressure measurement
     Dosage: 1 DOSAGE FORM, ONCE A DAY, EVERY MORNING
     Route: 048
     Dates: start: 20201010
  2. ZYRTEC [Concomitant]
     Active Substance: CETIRIZINE HYDROCHLORIDE
     Indication: Upper-airway cough syndrome
     Dosage: UNK, ONCE OR TWICE IN A YEAR
     Route: 065

REACTIONS (7)
  - Abdominal pain upper [Not Recovered/Not Resolved]
  - Abdominal discomfort [Not Recovered/Not Resolved]
  - Oesophageal pain [Not Recovered/Not Resolved]
  - Product odour abnormal [Unknown]
  - Product packaging issue [Unknown]
  - Product contamination [Unknown]
  - Product quality issue [Unknown]

NARRATIVE: CASE EVENT DATE: 20201031
